FAERS Safety Report 13833669 (Version 1)
Quarter: 2017Q3

REPORT INFORMATION
  Report Type: Spontaneous
  Country: IT (occurrence: IT)
  Receive Date: 20170804
  Receipt Date: 20170804
  Transmission Date: 20171127
  Serious: Yes (Other)
  Sender: FDA-Public Use
  Company Number: IT-ROCHE-1895718

PATIENT
  Age: 53 Year
  Sex: Male

DRUGS (5)
  1. AVASTIN [Suspect]
     Active Substance: BEVACIZUMAB
     Indication: COLON CANCER STAGE I
     Dosage: 1 VIAL CONTAINING 400 MG
     Route: 042
     Dates: start: 20161219, end: 20161219
  2. AVASTIN [Suspect]
     Active Substance: BEVACIZUMAB
     Route: 042
     Dates: start: 20161219, end: 20170207
  3. AVASTIN [Suspect]
     Active Substance: BEVACIZUMAB
     Dosage: 1 VIAL CONTAINING 100 MG
     Route: 042
     Dates: start: 20161219, end: 20161219
  4. OXALIPLATINO TEVA [Concomitant]
     Active Substance: OXALIPLATIN
     Dosage: 5 MG/ML 1 GLASS VIAL CONTAINING 20 ML
     Route: 042
  5. AVASTIN [Suspect]
     Active Substance: BEVACIZUMAB
     Route: 042
     Dates: start: 20161219, end: 20170207

REACTIONS (4)
  - Pain [Recovering/Resolving]
  - Dyspnoea [Recovering/Resolving]
  - Chest discomfort [Recovering/Resolving]
  - Hypertension [Recovered/Resolved]

NARRATIVE: CASE EVENT DATE: 20170115
